FAERS Safety Report 4503199-1 (Version None)
Quarter: 2004Q4

REPORT INFORMATION
  Report Type: 
  Country: None (occurrence: None)
  Receive Date: 20041112
  Receipt Date: 20041101
  Transmission Date: 20050328
  Serious: No
  Sender: FDA-Public Use
  Company Number: 2004GB02588

PATIENT
  Age: 67 Year
  Sex: Male
  Weight: 77.5 kg

DRUGS (4)
  1. ZOLADEX [Suspect]
     Indication: PROSTATE CANCER
     Dosage: 10.8 MG SQ
     Route: 058
     Dates: start: 20040607
  2. ADALAT [Concomitant]
  3. IRBESARTAN [Concomitant]
  4. ISPAGHULA [Concomitant]

REACTIONS (1)
  - ECZEMA [None]
